FAERS Safety Report 21519771 (Version 4)
Quarter: 2022Q4

REPORT INFORMATION
  Report Type: Spontaneous
  Country: CL (occurrence: CL)
  Receive Date: 20221028
  Receipt Date: 20221227
  Transmission Date: 20230113
  Serious: Yes (Life-Threatening)
  Sender: FDA-Public Use
  Company Number: CL-NOVARTISPH-NVSC2022CL242570

PATIENT
  Age: 67 Year
  Sex: Female
  Weight: 62 kg

DRUGS (5)
  1. OXALIPLATIN [Suspect]
     Active Substance: OXALIPLATIN
     Indication: Colon cancer
     Dosage: 108 MG, EVERY 14 DAYS (500 ML GLUCOSE SOLUTION 5 PERCENT, AFTER 2 HOURS TO 250 ML/HR)
     Route: 042
     Dates: start: 20220829
  2. FLUOROURACIL\LEUCOVORIN CALCIUM\OXALIPLATIN [Concomitant]
     Active Substance: FLUOROURACIL\LEUCOVORIN CALCIUM\OXALIPLATIN
     Indication: Product used for unknown indication
     Dosage: UNK
     Route: 065
  3. DEXTROSE [Concomitant]
     Active Substance: DEXTROSE
     Indication: Product used for unknown indication
     Dosage: 500 ML (GLUCOSE SOLUTION)
     Route: 042
  4. DEXTROSE [Concomitant]
     Active Substance: DEXTROSE
     Dosage: 250 ML (WITH LEUCOVORIN 510 MG)
     Route: 042
  5. LEUCOVORIN [Concomitant]
     Active Substance: LEUCOVORIN
     Indication: Colon cancer
     Dosage: 510 MG, EVERY 14 DAYS (IN 250 ML GLUCOSE SOLUTION 5%, TWO HOURS AT 125 ML/HR)
     Route: 042
     Dates: start: 20220829, end: 20220829

REACTIONS (2)
  - Erythema [Recovered/Resolved]
  - Pruritus [Recovered/Resolved]

NARRATIVE: CASE EVENT DATE: 20220829
